FAERS Safety Report 22121265 (Version 1)
Quarter: 2023Q1

REPORT INFORMATION
  Report Type: Report from Study
  Country: US (occurrence: None)
  Receive Date: 20230321
  Receipt Date: 20230321
  Transmission Date: 20230418
  Serious: Yes (Death, Other)
  Sender: FDA-Public Use
  Company Number: US-ROCHE-3313293

PATIENT

DRUGS (3)
  1. TOCILIZUMAB [Suspect]
     Active Substance: TOCILIZUMAB
     Indication: Malignant melanoma
     Dosage: DATE OF LAST DOSE 17/AUG/2021
     Route: 065
     Dates: start: 20210330
  2. IPILIMUMAB [Suspect]
     Active Substance: IPILIMUMAB
     Indication: Malignant melanoma
     Dosage: DATE OF LAST DOSE 17/AUG/2021
     Route: 065
     Dates: start: 20210330
  3. NIVOLUMAB [Suspect]
     Active Substance: NIVOLUMAB
     Indication: Malignant melanoma
     Dosage: DATE OF LAST DOSE 17/AUG/2021
     Route: 065
     Dates: start: 20210330

REACTIONS (3)
  - COVID-19 pneumonia [Unknown]
  - Arthritis bacterial [Unknown]
  - Death [Fatal]
